FAERS Safety Report 24642479 (Version 1)
Quarter: 2024Q4

REPORT INFORMATION
  Report Type: Spontaneous
  Country: GB (occurrence: GB)
  Receive Date: 20241120
  Receipt Date: 20241120
  Transmission Date: 20250115
  Serious: Yes (Death, Other)
  Sender: AMGEN
  Company Number: GB-AMGEN-GBRSP2024225172

PATIENT

DRUGS (6)
  1. CARFILZOMIB [Suspect]
     Active Substance: CARFILZOMIB
     Indication: Plasma cell myeloma refractory
     Dosage: UNK
     Route: 065
  2. IXAZOMIB [Suspect]
     Active Substance: IXAZOMIB
     Indication: Plasma cell myeloma refractory
     Dosage: UNK
     Route: 065
  3. THALIDOMIDE [Suspect]
     Active Substance: THALIDOMIDE
     Indication: Plasma cell myeloma refractory
     Dosage: UNK
     Route: 065
  4. DEXAMETHASONE [Suspect]
     Active Substance: DEXAMETHASONE
     Indication: Plasma cell myeloma refractory
     Dosage: UNK
     Route: 065
  5. LENALIDOMIDE [Suspect]
     Active Substance: LENALIDOMIDE
     Indication: Plasma cell myeloma refractory
     Dosage: UNK
     Route: 065
  6. BORTEZOMIB [Suspect]
     Active Substance: BORTEZOMIB
     Indication: Plasma cell myeloma refractory
     Dosage: UNK
     Route: 065

REACTIONS (44)
  - Death [Fatal]
  - Pneumonia [Fatal]
  - Plasma cell myeloma [Fatal]
  - Infection [Fatal]
  - COVID-19 [Fatal]
  - Cardiac disorder [Fatal]
  - Neoplasm malignant [Fatal]
  - Respiratory disorder [Fatal]
  - Nervous system disorder [Fatal]
  - Minimal residual disease [Unknown]
  - Syncope [Unknown]
  - Sepsis [Unknown]
  - Alanine aminotransferase increased [Unknown]
  - Anaemia [Unknown]
  - Platelet count decreased [Unknown]
  - Upper respiratory tract infection [Unknown]
  - Lymphocyte count decreased [Unknown]
  - Diarrhoea [Unknown]
  - Gastrointestinal disorder [Unknown]
  - Toothache [Unknown]
  - White blood cell count decreased [Unknown]
  - Epistaxis [Unknown]
  - Urinary tract infection [Unknown]
  - Neutrophil count decreased [Unknown]
  - Tooth infection [Unknown]
  - Pyrexia [Unknown]
  - Oedema peripheral [Unknown]
  - Hypertension [Unknown]
  - Stomatitis [Unknown]
  - Adverse event [Unknown]
  - Fatigue [Unknown]
  - Cough [Unknown]
  - Peripheral sensory neuropathy [Unknown]
  - Constipation [Unknown]
  - Nausea [Unknown]
  - Dyspnoea [Unknown]
  - Back pain [Unknown]
  - Pain in extremity [Unknown]
  - Vomiting [Unknown]
  - Rash maculo-papular [Unknown]
  - Dizziness [Unknown]
  - Headache [Unknown]
  - Insomnia [Unknown]
  - Therapy non-responder [Unknown]
